FAERS Safety Report 11266095 (Version 2)
Quarter: 2015Q3

REPORT INFORMATION
  Report Type: Spontaneous
  Country: CN (occurrence: CN)
  Receive Date: 20150713
  Receipt Date: 20150722
  Transmission Date: 20151125
  Serious: Yes (Death, Hospitalization)
  Sender: FDA-Public Use
  Company Number: CN-PFIZER INC-2015228406

PATIENT
  Age: 68 Year
  Sex: Male

DRUGS (3)
  1. PHARMORUBICIN [Suspect]
     Active Substance: EPIRUBICIN
     Dosage: 50 MG, SINGLE
     Dates: start: 201411
  2. PHARMORUBICIN [Suspect]
     Active Substance: EPIRUBICIN
     Dosage: 40 MG, SINGLE
  3. WARFARIN [Concomitant]
     Active Substance: WARFARIN

REACTIONS (7)
  - Palpitations [Unknown]
  - Haematuria [Recovered/Resolved]
  - Dyschezia [Unknown]
  - Arrhythmia [Unknown]
  - Left ventricular failure [Fatal]
  - Multi-organ failure [Fatal]
  - Pain [Unknown]

NARRATIVE: CASE EVENT DATE: 201503
